FAERS Safety Report 14482138 (Version 3)
Quarter: 2018Q1

REPORT INFORMATION
  Report Type: Report from Study
  Country: US (occurrence: US)
  Receive Date: 20180202
  Receipt Date: 20180322
  Transmission Date: 20180509
  Serious: Yes (Hospitalization, Other)
  Sender: FDA-Public Use
  Company Number: US-ACTELION-A-NJ2017-163441

PATIENT
  Age: 78 Year
  Sex: Female
  Weight: 90.7 kg

DRUGS (3)
  1. ADEMPAS [Concomitant]
     Active Substance: RIOCIGUAT
     Dosage: 2.5MG QAM, 1.5MG IN AFTERNOON AND 2.5MG QPM, TID
     Dates: start: 20180121
  2. WARFARIN [Concomitant]
     Active Substance: WARFARIN
  3. OPSUMIT [Suspect]
     Active Substance: MACITENTAN
     Indication: PULMONARY ARTERIAL HYPERTENSION
     Dosage: 10 MG, QD
     Route: 048
     Dates: start: 201711

REACTIONS (10)
  - Arthropathy [Unknown]
  - Oedema [Unknown]
  - Nasal congestion [Unknown]
  - Lacrimation increased [Unknown]
  - Knee arthroplasty [Unknown]
  - Sneezing [Unknown]
  - Peripheral swelling [Unknown]
  - Rhinorrhoea [Unknown]
  - Dizziness [Recovering/Resolving]
  - Nasopharyngitis [Unknown]
